FAERS Safety Report 21379607 (Version 1)
Quarter: 2022Q3

REPORT INFORMATION
  Report Type: Spontaneous
  Country: US (occurrence: US)
  Receive Date: 20220927
  Receipt Date: 20220927
  Transmission Date: 20221026
  Serious: Yes (Other)
  Sender: FDA-Public Use
  Company Number: US-BEH-2022149879

PATIENT
  Sex: Male

DRUGS (1)
  1. RIASTAP [Suspect]
     Active Substance: FIBRINOGEN HUMAN
     Indication: Thrombocytopenia
     Dosage: 4104 MILLIGRAM, BIW
     Route: 042
     Dates: start: 20220623

REACTIONS (3)
  - Cerebrovascular accident [Unknown]
  - No adverse event [Unknown]
  - Off label use [Unknown]
